FAERS Safety Report 5848906-0 (Version None)
Quarter: 2008Q3

REPORT INFORMATION
  Report Type: 
  Country: None (occurrence: None)
  Receive Date: 20080818
  Receipt Date: 20080808
  Transmission Date: 20090109
  Serious: Yes (Hospitalization)
  Sender: FDA-Public Use
  Company Number: GB-PFIZER INC-2008066919

PATIENT
  Age: 62 Year
  Sex: Male

DRUGS (9)
  1. CHANTIX [Suspect]
     Indication: SMOKING CESSATION THERAPY
     Route: 048
     Dates: start: 20080206, end: 20080729
  2. ESCITALOPRAM [Concomitant]
  3. AMISULPRIDE [Concomitant]
  4. FINASTERIDE [Concomitant]
  5. HUMALOG [Concomitant]
  6. METFORMIN HCL [Concomitant]
  7. PROCYCLIDINE HYDROCHLORIDE 5MG TAB [Concomitant]
  8. SIMVASTATIN [Concomitant]
  9. OMEPRAZOLE [Concomitant]

REACTIONS (3)
  - CONFUSIONAL STATE [None]
  - DELIRIUM [None]
  - DEPRESSION [None]
